FAERS Safety Report 9754529 (Version 9)
Quarter: 2014Q2

REPORT INFORMATION
  Report Type: Report from Study
  Country: MX (occurrence: MX)
  Receive Date: 20131213
  Receipt Date: 20140430
  Transmission Date: 20141212
  Serious: Yes (Death, Disabling)
  Sender: FDA-Public Use
  Company Number: MX-B.I. PHARMACEUTICALS,INC./RIDGEFIELD-2013-BI-31226BI

PATIENT
  Age: 49 Year
  Sex: Male
  Weight: 57 kg

DRUGS (15)
  1. BIBW 2992 [Suspect]
     Indication: SQUAMOUS CELL CARCINOMA OF HEAD AND NECK
     Dosage: 40 MG
     Route: 048
     Dates: start: 20130711
  2. BIBW 2992 [Suspect]
     Dosage: 50 MG
     Route: 048
     Dates: start: 20130808, end: 20131030
  3. INDOXYL GEL (BENZOYL PEROXIDE CLINDAMYCIN) [Suspect]
     Indication: RASH
     Dosage: ROUTE: SKIN
     Route: 050
     Dates: start: 20130919
  4. UREDIN RX 20 LOTION (UREA) [Suspect]
     Indication: RASH
     Dosage: ROUTE: SKIN
     Route: 050
     Dates: start: 20130919
  5. UMBRELLA PLUS SPRAY [Suspect]
     Indication: RASH
     Dosage: ROUTE: SKIN
     Route: 050
     Dates: start: 20130919
  6. LOPERAMIDE [Concomitant]
     Indication: DIARRHOEA
     Dosage: 6 MG
     Route: 048
     Dates: start: 20130902, end: 20130904
  7. MORPHINA MORPHINE [Concomitant]
     Indication: PAIN
     Dosage: 15 MG
     Route: 048
     Dates: start: 20130509
  8. IMIPRAMINE [Concomitant]
     Indication: DEPRESSION
     Dosage: 10 MG
     Route: 048
     Dates: start: 20130509
  9. GABAPENTIN [Concomitant]
     Indication: ANXIETY
     Dosage: 300 MG
     Route: 048
     Dates: start: 20130509
  10. METOCHLOPRAMIDE [Concomitant]
     Indication: NAUSEA
     Dosage: 10 MG
     Route: 048
     Dates: start: 20130509
  11. SENNOSIDES [Concomitant]
     Indication: CONSTIPATION
     Dosage: 8.6 MG
     Route: 048
     Dates: start: 20130509
  12. SENNOSIDES [Concomitant]
     Dosage: 187 MG
     Route: 048
     Dates: start: 20140204, end: 20140204
  13. BUTHIOSCINA [Concomitant]
     Indication: PAIN
     Dosage: 10 MG
     Route: 048
     Dates: start: 20140204
  14. DICYNONE [Concomitant]
     Indication: ILL-DEFINED DISORDER
     Dosage: 250 MG
     Route: 042
     Dates: start: 20140204
  15. MIDAZOLAM [Concomitant]
     Indication: SLEEP DISORDER
     Dosage: 1.5 MG/3
     Route: 042
     Dates: start: 20140204

REACTIONS (7)
  - Malignant neoplasm progression [Fatal]
  - Mucosal inflammation [Unknown]
  - Odynophagia [Not Recovered/Not Resolved]
  - Rash [Not Recovered/Not Resolved]
  - Palmar-plantar erythrodysaesthesia syndrome [Unknown]
  - Rash [Not Recovered/Not Resolved]
  - Rash [Not Recovered/Not Resolved]
